FAERS Safety Report 23917997 (Version 1)
Quarter: 2024Q2

REPORT INFORMATION
  Report Type: Spontaneous
  Country: GB (occurrence: GB)
  Receive Date: 20240530
  Receipt Date: 20240530
  Transmission Date: 20240716
  Serious: Yes (Other)
  Sender: FDA-Public Use
  Company Number: GB-ZAMBON-202401461GBR

PATIENT
  Age: 79 Year
  Sex: Male

DRUGS (5)
  1. SAFINAMIDE [Suspect]
     Active Substance: SAFINAMIDE
     Indication: Ill-defined disorder
     Dates: start: 20240410, end: 20240510
  2. SAFINAMIDE [Suspect]
     Active Substance: SAFINAMIDE
     Dosage: NOT PROVIDED
     Dates: start: 20240515
  3. ATORVASTATIN [Concomitant]
     Active Substance: ATORVASTATIN
     Indication: Ill-defined disorder
     Dosage: NOT PROVIDED
     Dates: start: 20230821
  4. BENSERAZIDE HYDROCHLORIDE\LEVODOPA [Concomitant]
     Active Substance: BENSERAZIDE HYDROCHLORIDE\LEVODOPA
     Indication: Ill-defined disorder
     Dosage: NOT PROVIDED
     Dates: start: 20230821
  5. BENSERAZIDE HYDROCHLORIDE\LEVODOPA [Concomitant]
     Active Substance: BENSERAZIDE HYDROCHLORIDE\LEVODOPA
     Indication: Ill-defined disorder
     Dosage: NOT PROVIDED
     Route: 065
     Dates: start: 20230821, end: 20240403

REACTIONS (5)
  - Condition aggravated [Unknown]
  - Malaise [Recovered/Resolved]
  - Hallucination [Unknown]
  - Confusional state [Recovered/Resolved]
  - Product use in unapproved indication [Unknown]

NARRATIVE: CASE EVENT DATE: 20240515
